FAERS Safety Report 19372026 (Version 2)
Quarter: 2021Q2

REPORT INFORMATION
  Report Type: Spontaneous
  Country: JP (occurrence: JP)
  Receive Date: 20210603
  Receipt Date: 20210608
  Transmission Date: 20210717
  Serious: Yes (Death, Disabling, Other)
  Sender: FDA-Public Use
  Company Number: JP-BAYER-2019-176254

PATIENT
  Age: 77 Year
  Sex: Male
  Weight: 87 kg

DRUGS (7)
  1. XOFIGO [Suspect]
     Active Substance: RADIUM RA-223 DICHLORIDE
     Indication: METASTASES TO BONE
     Dosage: 53.96KBQ/KG, ONCE
     Route: 042
     Dates: start: 20181120, end: 20181120
  2. BETAMETHASONE. [Suspect]
     Active Substance: BETAMETHASONE
     Dosage: DAILY DOSE 3 MG
     Route: 048
     Dates: start: 20181225, end: 20190107
  3. BETAMETHASONE. [Suspect]
     Active Substance: BETAMETHASONE
     Dosage: DAILY DOSE 2 MG
     Route: 048
     Dates: start: 20190108, end: 20190123
  4. XOFIGO [Suspect]
     Active Substance: RADIUM RA-223 DICHLORIDE
     Indication: HORMONE-REFRACTORY PROSTATE CANCER
     Dosage: 54.52KBQ/KG, ONCE
     Route: 042
     Dates: start: 20181225, end: 20181225
  5. XOFIGO [Suspect]
     Active Substance: RADIUM RA-223 DICHLORIDE
     Indication: METASTASES TO BONE
     Dosage: 57.4KBQ/KG, ONCE
     Route: 042
     Dates: start: 20190124, end: 20190124
  6. BETAMETHASONE. [Suspect]
     Active Substance: BETAMETHASONE
     Dosage: DAILY DOSE 1 MG
     Route: 048
     Dates: end: 20190202
  7. BETAMETHASONE. [Concomitant]
     Active Substance: BETAMETHASONE
     Indication: SPINAL PAIN

REACTIONS (9)
  - Pollakiuria [None]
  - Oliguria [Recovering/Resolving]
  - Urinary retention [Recovered/Resolved]
  - Off label use [None]
  - Red blood cell count decreased [None]
  - Platelet count decreased [None]
  - Pneumocystis jirovecii pneumonia [Fatal]
  - Tumour invasion [None]
  - Anaemia [None]

NARRATIVE: CASE EVENT DATE: 201812
